FAERS Safety Report 16310456 (Version 1)
Quarter: 2019Q2

REPORT INFORMATION
  Report Type: Spontaneous
  Country: US (occurrence: US)
  Receive Date: 20190514
  Receipt Date: 20190514
  Transmission Date: 20190711
  Serious: Yes (Hospitalization)
  Sender: FDA-Public Use
  Company Number: US-ACTELION-A-NJ2018-182876

PATIENT
  Age: 67 Year
  Sex: Female
  Weight: 44.9 kg

DRUGS (3)
  1. COUMADIN [Concomitant]
     Active Substance: WARFARIN SODIUM
  2. AMLODIPINE [Concomitant]
     Active Substance: AMLODIPINE BESYLATE
  3. VELETRI [Suspect]
     Active Substance: EPOPROSTENOL
     Indication: PULMONARY HYPERTENSION
     Dosage: 30 NG/KG, PER MIN
     Route: 042

REACTIONS (3)
  - Thrombocytopenia [Not Recovered/Not Resolved]
  - Haemoptysis [Unknown]
  - Gastrointestinal haemorrhage [Unknown]

NARRATIVE: CASE EVENT DATE: 20181120
